FAERS Safety Report 24779287 (Version 1)
Quarter: 2024Q4

REPORT INFORMATION
  Report Type: Spontaneous
  Country: US (occurrence: None)
  Receive Date: 20241226
  Receipt Date: 20241226
  Transmission Date: 20250115
  Serious: Yes (Hospitalization)
  Sender: Public
  Company Number: None

PATIENT
  Sex: Female

DRUGS (3)
  1. SILDENAFIL CITRATE [Suspect]
     Active Substance: SILDENAFIL CITRATE
     Dosage: FREQUENCY : TWICE A DAY;?
     Route: 048
     Dates: start: 202410
  2. UPTRAVI [Concomitant]
     Active Substance: SELEXIPAG
  3. AMBRISENTAN [Suspect]
     Active Substance: AMBRISENTAN

REACTIONS (4)
  - Fall [None]
  - Rib fracture [None]
  - Pulmonary oedema [None]
  - Product dose omission in error [None]
